FAERS Safety Report 7921113-3 (Version None)
Quarter: 2011Q4

REPORT INFORMATION
  Report Type: 
  Country: None (occurrence: None)
  Receive Date: 20111117
  Receipt Date: 20111111
  Transmission Date: 20120403
  Serious: Yes (Hospitalization, Other)
  Sender: FDA-Public Use
  Company Number: JP-CELGENEUS-087-21880-11040165

PATIENT
  Sex: Male

DRUGS (54)
  1. DEXAMETHASONE SODIUM PHOSPHATE [Suspect]
     Dosage: 13.2 MILLIGRAM
     Route: 041
     Dates: start: 20101209, end: 20101209
  2. SULFAMETHOXAZOLE AND TRIMETHOPRIM [Concomitant]
     Indication: PROPHYLAXIS
     Dosage: 1 TABLET
     Route: 048
     Dates: start: 20101129, end: 20110206
  3. ASPIRIN [Concomitant]
     Indication: PROPHYLAXIS
     Dosage: 100 MILLIGRAM
     Route: 048
     Dates: start: 20101129, end: 20110206
  4. FUNGIZONE [Concomitant]
     Indication: PROPHYLAXIS
     Dosage: 16 MILLILITER
     Route: 048
     Dates: start: 20101129, end: 20101226
  5. KYTRIL [Concomitant]
     Dosage: 3 MILLIGRAM
     Route: 041
     Dates: start: 20101209, end: 20101209
  6. KYTRIL [Concomitant]
     Dosage: 3 MILLIGRAM
     Route: 041
     Dates: start: 20110124, end: 20110124
  7. VELCADE [Suspect]
     Dosage: 2.129 MILLIGRAM
     Route: 041
     Dates: start: 20110113, end: 20110124
  8. DEXAMETHASONE SODIUM PHOSPHATE [Suspect]
     Indication: REFRACTORY CANCER
     Dosage: 13.2 MILLIGRAM
     Route: 041
     Dates: start: 20101202, end: 20101203
  9. DECADRON [Concomitant]
     Dosage: 16.5 MILLIGRAM
     Route: 041
     Dates: start: 20101227, end: 20101230
  10. DECADRON [Concomitant]
     Dosage: 16.5 MILLIGRAM
     Route: 041
     Dates: start: 20110113, end: 20110114
  11. KYTRIL [Concomitant]
     Dosage: 3 MILLIGRAM
     Route: 041
     Dates: start: 20101202, end: 20101202
  12. KYTRIL [Concomitant]
     Dosage: 3 MILLIGRAM
     Route: 041
     Dates: start: 20101206, end: 20101206
  13. KYTRIL [Concomitant]
     Dosage: 3 MILLIGRAM
     Route: 041
     Dates: start: 20101220, end: 20101229
  14. KYTRIL [Concomitant]
     Dosage: 3 MILLIGRAM
     Route: 041
     Dates: start: 20110117, end: 20110118
  15. REVLIMID [Suspect]
     Dosage: 25 MILLIGRAM
     Route: 048
     Dates: start: 20110113, end: 20110126
  16. DECADRON [Concomitant]
     Dosage: 3.3 MILLIGRAM
     Route: 041
     Dates: start: 20101206, end: 20101207
  17. VELCADE [Suspect]
     Dosage: 2.129 MILLIGRAM
     Route: 041
     Dates: start: 20110207, end: 20110217
  18. DEXAMETHASONE SODIUM PHOSPHATE [Suspect]
     Indication: MULTIPLE MYELOMA
     Dosage: 13.2 MILLIGRAM
     Route: 041
     Dates: start: 20101129, end: 20101130
  19. DECADRON [Concomitant]
     Indication: MULTIPLE MYELOMA
     Dosage: 3.3 MILLIGRAM
     Route: 041
     Dates: start: 20101129, end: 20101130
  20. DECADRON [Concomitant]
     Dosage: 3.3 MILLIGRAM
     Route: 041
     Dates: start: 20101209, end: 20101209
  21. DECADRON [Concomitant]
     Dosage: 16.5 MILLIGRAM
     Route: 041
     Dates: start: 20110117, end: 20110118
  22. SULFAMETHOXAZOLE AND TRIMETHOPRIM [Concomitant]
     Dosage: 1 TABLET
     Route: 048
     Dates: start: 20110207, end: 20110420
  23. REVLIMID [Suspect]
     Indication: MULTIPLE MYELOMA
     Dosage: 25 MILLIGRAM
     Route: 048
     Dates: start: 20101129, end: 20101212
  24. VELCADE [Suspect]
     Dosage: 1.3 MILLIGRAM/SQ. METER
     Route: 041
     Dates: start: 20101206, end: 20101209
  25. VELCADE [Suspect]
     Dosage: 2.129 MILLIGRAM
     Route: 041
     Dates: start: 20101220, end: 20101229
  26. DEXAMETHASONE SODIUM PHOSPHATE [Suspect]
     Dosage: 13.2 MILLIGRAM
     Route: 041
     Dates: start: 20101206, end: 20101207
  27. DECADRON [Concomitant]
     Dosage: 16.5 MILLIGRAM
     Route: 041
     Dates: start: 20110124, end: 20110125
  28. ZOVIRAX [Concomitant]
     Dosage: 200 MILLIGRAM
     Route: 048
     Dates: start: 20110207, end: 20110420
  29. ASPIRIN [Concomitant]
     Dosage: 100 MILLIGRAM
     Route: 048
     Dates: start: 20110222, end: 20110420
  30. LENDORMIN D [Concomitant]
     Dosage: .25 MILLIGRAM
     Route: 048
     Dates: start: 20101220, end: 20110420
  31. ZOMETA [Concomitant]
     Indication: PROPHYLAXIS
     Dosage: 4 MILLIGRAM
     Route: 041
     Dates: start: 20110120, end: 20110120
  32. KYTRIL [Concomitant]
     Dosage: 3 MILLIGRAM
     Route: 041
     Dates: start: 20110113, end: 20110114
  33. IRRADIATED ERYTHROCYTE CONCENTRATE [Concomitant]
     Indication: MULTIPLE MYELOMA
     Dosage: 2 UNIT
     Route: 041
     Dates: start: 20110221, end: 20110221
  34. IRRADIATED PLATELET CONCENTRATE [Concomitant]
     Indication: MULTIPLE MYELOMA
     Dosage: 10 UNIT
     Route: 041
     Dates: start: 20110221, end: 20110221
  35. REVLIMID [Suspect]
     Dosage: 25 MILLIGRAM
     Route: 048
     Dates: start: 20110207, end: 20110220
  36. DECADRON [Concomitant]
     Indication: REFRACTORY CANCER
     Dosage: 3.3 MILLIGRAM
     Route: 041
     Dates: start: 20101202, end: 20101203
  37. DECADRON [Concomitant]
     Dosage: 3.3 MILLIGRAM
     Route: 041
     Dates: start: 20110207, end: 20110217
  38. ZOVIRAX [Concomitant]
     Indication: PROPHYLAXIS
     Dosage: 200 MILLIGRAM
     Route: 048
     Dates: start: 20101129, end: 20110206
  39. ZOMETA [Concomitant]
     Indication: MULTIPLE MYELOMA
     Dosage: 4 MILLIGRAM
     Route: 041
     Dates: start: 20101203, end: 20101203
  40. REVLIMID [Suspect]
     Indication: REFRACTORY CANCER
     Dosage: 25 MILLIGRAM
     Route: 048
     Dates: start: 20101220, end: 20110102
  41. VELCADE [Suspect]
     Indication: REFRACTORY CANCER
     Dosage: 1.3 MILLIGRAM/SQ. METER
     Route: 041
     Dates: start: 20101202, end: 20101202
  42. LANSOPRAZOLE [Concomitant]
     Indication: PROPHYLAXIS
     Dosage: 30 MILLIGRAM
     Route: 048
     Dates: start: 20101129, end: 20110420
  43. MUCOSTA [Concomitant]
     Indication: PROPHYLAXIS
     Dosage: 300 MILLIGRAM
     Route: 048
     Dates: start: 20101129, end: 20110206
  44. ZOMETA [Concomitant]
     Dosage: 4 MILLIGRAM
     Route: 041
     Dates: start: 20110207, end: 20110207
  45. VELCADE [Suspect]
     Indication: MULTIPLE MYELOMA
     Dosage: 1.3 MILLIGRAM/SQ. METER
     Route: 041
     Dates: start: 20101129, end: 20101129
  46. DECADRON [Concomitant]
     Dosage: 16.5 MILLIGRAM
     Route: 041
     Dates: start: 20101220, end: 20101223
  47. DECADRON [Concomitant]
     Dosage: 16.5 MILLIGRAM
     Route: 041
     Dates: start: 20110120, end: 20110121
  48. DECADRON [Concomitant]
     Dosage: 13.2 MILLIGRAM
     Route: 041
     Dates: start: 20110207, end: 20110217
  49. MUCOSTA [Concomitant]
     Dosage: 300 MILLIGRAM
     Route: 048
     Dates: start: 20110207, end: 20110420
  50. ISODINE [Concomitant]
     Indication: PROPHYLAXIS
     Dosage: ADEQUATE DOSE
     Route: 048
     Dates: start: 20101129, end: 20110206
  51. ITRACONAZOLE [Concomitant]
     Indication: PROPHYLAXIS
     Dosage: 20 MILLILITER
     Route: 048
     Dates: start: 20110202, end: 20110222
  52. KYTRIL [Concomitant]
     Indication: PROPHYLAXIS
     Dosage: 3 MILLIGRAM
     Route: 041
     Dates: start: 20101129, end: 20101129
  53. KYTRIL [Concomitant]
     Dosage: 3 MILLIGRAM
     Route: 041
     Dates: start: 20110120, end: 20110120
  54. KYTRIL [Concomitant]
     Dosage: 3 MILLIGRAM
     Route: 041
     Dates: start: 20110207, end: 20110217

REACTIONS (4)
  - CONJUNCTIVITIS [None]
  - HAEMOGLOBIN DECREASED [None]
  - DIARRHOEA [None]
  - HYPOGAMMAGLOBULINAEMIA [None]
